FAERS Safety Report 6209064-6 (Version None)
Quarter: 2009Q2

REPORT INFORMATION
  Report Type: 
  Country: None (occurrence: None)
  Receive Date: 20090529
  Receipt Date: 20090527
  Transmission Date: 20091009
  Serious: Yes (Hospitalization, Other)
  Sender: FDA-Public Use
  Company Number: PHHY2009US15287

PATIENT
  Sex: Female
  Weight: 48.7 kg

DRUGS (2)
  1. GLEEVEC [Suspect]
     Indication: CHRONIC MYELOID LEUKAEMIA
     Dosage: 400 MG, QD
     Route: 048
  2. MIRALAX [Concomitant]

REACTIONS (16)
  - ABDOMINAL PAIN [None]
  - BACTERIA URINE [None]
  - BLOOD URINE PRESENT [None]
  - DEHYDRATION [None]
  - ESCHAR [None]
  - FATIGUE [None]
  - HAEMOGLOBIN DECREASED [None]
  - HYPOPHAGIA [None]
  - METAMYELOCYTE PERCENTAGE [None]
  - MYALGIA [None]
  - NAUSEA [None]
  - NUCLEATED RED CELLS [None]
  - OVARIAN CYST [None]
  - PYREXIA [None]
  - VOMITING [None]
  - WHITE BLOOD CELL COUNT INCREASED [None]
